FAERS Safety Report 8031704-X (Version None)
Quarter: 2012Q1

REPORT INFORMATION
  Report Type: 
  Country: None (occurrence: None)
  Receive Date: 20120109
  Receipt Date: 20111229
  Transmission Date: 20120608
  Serious: Yes (Other)
  Sender: FDA-Public Use
  Company Number: IL-SANOFI-AVENTIS-2011SA055825

PATIENT
  Age: 66 Year
  Sex: Male

DRUGS (6)
  1. APIDRA [Suspect]
     Indication: DIABETES MELLITUS
     Dosage: 6-10
     Route: 058
  2. LANTUS [Suspect]
     Indication: DIABETES MELLITUS
     Route: 058
  3. APIDRA [Suspect]
     Dosage: DOSE:20 UNIT(S)
     Route: 065
  4. WARFARIN SODIUM [Concomitant]
  5. ANTIBIOTICS [Concomitant]
  6. ALL OTHER THERAPEUTIC PRODUCTS [Concomitant]

REACTIONS (1)
  - DIABETES MELLITUS INADEQUATE CONTROL [None]
